FAERS Safety Report 7652991-3 (Version None)
Quarter: 2011Q3

REPORT INFORMATION
  Report Type: 
  Country: None (occurrence: None)
  Receive Date: 20110803
  Receipt Date: 20110725
  Transmission Date: 20111222
  Serious: Yes (Hospitalization)
  Sender: FDA-Public Use
  Company Number: US-ROCHE-786362

PATIENT
  Sex: Female

DRUGS (5)
  1. RIBAVIRIN [Suspect]
     Route: 065
  2. RIBAVIRIN [Suspect]
     Route: 065
     Dates: end: 20110613
  3. RIBASPHERE [Suspect]
     Indication: HEPATITIS C
     Route: 065
  4. PEGASYS [Suspect]
     Indication: HEPATITIS C
     Dosage: WEEKLY
     Route: 065
     Dates: start: 20110107, end: 20110613
  5. RIBAVIRIN [Suspect]
     Indication: HEPATITIS C
     Route: 065
     Dates: start: 20110107

REACTIONS (7)
  - WITHDRAWAL SYNDROME [None]
  - BLOOD DISORDER [None]
  - DEPRESSION [None]
  - COUGH [None]
  - ANXIETY [None]
  - PYREXIA [None]
  - THERAPEUTIC RESPONSE DECREASED [None]
